FAERS Safety Report 15132455 (Version 2)
Quarter: 2018Q3

REPORT INFORMATION
  Report Type: Spontaneous
  Country: US (occurrence: US)
  Receive Date: 20180712
  Receipt Date: 20180813
  Transmission Date: 20181010
  Serious: Yes (Hospitalization)
  Sender: FDA-Public Use
  Company Number: US-JNJFOC-20180636911

PATIENT
  Age: 42 Year
  Sex: Male

DRUGS (1)
  1. XARELTO [Suspect]
     Active Substance: RIVAROXABAN
     Indication: DEEP VEIN THROMBOSIS
     Route: 048
     Dates: start: 20161026, end: 20170220

REACTIONS (3)
  - Inappropriate schedule of drug administration [Unknown]
  - Off label use [Unknown]
  - Haematuria [Recovering/Resolving]

NARRATIVE: CASE EVENT DATE: 20170104
